FAERS Safety Report 5343361-1 (Version None)
Quarter: 2007Q2

REPORT INFORMATION
  Report Type: 
  Country: None (occurrence: None)
  Receive Date: 20070501
  Receipt Date: 20070125
  Transmission Date: 20071010
  Serious: Yes (Death)
  Sender: FDA-Public Use
  Company Number: 200710567US

PATIENT

DRUGS (1)
  1. ENOXAPARIN SODIUM [Suspect]
     Indication: KNEE ARTHROPLASTY
     Dosage: Q8H

REACTIONS (3)
  - DRUG ADMINISTRATION ERROR [None]
  - HAEMORRHAGE [None]
  - OVERDOSE [None]
